FAERS Safety Report 4763682-0 (Version None)
Quarter: 2005Q3

REPORT INFORMATION
  Report Type: 
  Country: None (occurrence: None)
  Receive Date: 20050908
  Receipt Date: 20050829
  Transmission Date: 20060218
  Serious: Yes (Other)
  Sender: FDA-Public Use
  Company Number: US-GLAXOSMITHKLINE-A0572229A

PATIENT
  Sex: Female

DRUGS (1)
  1. COMPAZINE [Suspect]
     Route: 065

REACTIONS (6)
  - DYSPNOEA [None]
  - HYPERSENSITIVITY [None]
  - SHOCK [None]
  - SWOLLEN TONGUE [None]
  - TONGUE DISORDER [None]
  - VOMITING [None]
